FAERS Safety Report 5323717-3 (Version None)
Quarter: 2007Q1

REPORT INFORMATION
  Report Type: 
  Country: None (occurrence: None)
  Receive Date: 20070222
  Receipt Date: 20070123
  Transmission Date: 20070707
  Serious: Yes (Other)
  Sender: FDA-Public Use
  Company Number: 2007006165

PATIENT
  Sex: Male
  Weight: 75.8 kg

DRUGS (1)
  1. EXUBERA [Suspect]
     Indication: DIABETES MELLITUS NON-INSULIN-DEPENDENT
     Dosage: 3 IN 1

REACTIONS (1)
  - BLOOD GLUCOSE INCREASED [None]
